FAERS Safety Report 4264602-8 (Version None)
Quarter: 2004Q1

REPORT INFORMATION
  Report Type: 
  Country: None (occurrence: None)
  Receive Date: 20040106
  Receipt Date: 20031209
  Transmission Date: 20041129
  Serious: Yes (Disabling)
  Sender: FDA-Public Use
  Company Number: GB-ROCHE-353751

PATIENT
  Age: 57 Year
  Sex: Male
  Weight: 96.2 kg

DRUGS (1)
  1. ROFERON-A [Suspect]
     Dosage: DOSAGE REGIMEN REPORTED AS: 30 M.V.
     Route: 058
     Dates: start: 19931108

REACTIONS (1)
  - MUSCLE NECROSIS [None]
